FAERS Safety Report 9113019 (Version 1)
Quarter: 2013Q1

REPORT INFORMATION
  Report Type: Spontaneous
  Country: BR (occurrence: BR)
  Receive Date: 20130211
  Receipt Date: 20130211
  Transmission Date: 20140127
  Serious: Yes (Other)
  Sender: FDA-Public Use
  Company Number: BR-PFIZER INC-2013050871

PATIENT
  Age: 73 Year
  Sex: Male

DRUGS (4)
  1. LIPITOR [Suspect]
     Indication: BLOOD CHOLESTEROL INCREASED
     Dosage: 10 MG, 1X/DAY
     Route: 048
     Dates: start: 2011
  2. CLOPIDOGREL [Concomitant]
     Indication: CARDIAC DISORDER
     Dosage: 75 MG, 1X/DAY
     Dates: start: 20130112
  3. RIVOTRIL [Concomitant]
     Indication: SLEEP DISORDER
     Dosage: UNK, DAILY
     Dates: start: 20130112
  4. SOMALGIN [Concomitant]
     Indication: CARDIAC DISORDER
     Dosage: UNK, DAILY
     Dates: start: 20130112

REACTIONS (2)
  - Cardiac disorder [Unknown]
  - Venous occlusion [Unknown]
